FAERS Safety Report 24451133 (Version 2)
Quarter: 2024Q4

REPORT INFORMATION
  Report Type: Spontaneous
  Country: FR (occurrence: FR)
  Receive Date: 20241017
  Receipt Date: 20241029
  Transmission Date: 20250115
  Serious: Yes (Hospitalization, Other)
  Sender: SANDOZ
  Company Number: None

PATIENT
  Age: 53 Year
  Sex: Female

DRUGS (2)
  1. DOLIPRANE [Suspect]
     Active Substance: ACETAMINOPHEN
     Indication: Product used for unknown indication
     Dosage: UNK
     Route: 065
  2. ACETAMINOPHEN [Suspect]
     Active Substance: ACETAMINOPHEN
     Indication: Product used for unknown indication
     Dosage: UNK
     Route: 065

REACTIONS (40)
  - Meningioma [Unknown]
  - Oculogyric crisis [Unknown]
  - Pulmonary embolism [Unknown]
  - Embolism [Unknown]
  - Mastication disorder [Unknown]
  - Vertigo [Unknown]
  - Trismus [Unknown]
  - Scar [Unknown]
  - Balance disorder [Unknown]
  - Disturbance in attention [Unknown]
  - Pain [Unknown]
  - Stress [Unknown]
  - Speech disorder [Unknown]
  - Job dissatisfaction [Unknown]
  - Paraesthesia [Unknown]
  - Heavy menstrual bleeding [Unknown]
  - Eye pain [Unknown]
  - Trismus [Unknown]
  - Facial pain [Unknown]
  - Abnormal behaviour [Unknown]
  - COVID-19 [Unknown]
  - Dyslexia [Unknown]
  - Skin hypopigmentation [Unknown]
  - Eye disorder [Unknown]
  - Memory impairment [Unknown]
  - Skin lesion [Unknown]
  - Occipital neuralgia [Unknown]
  - Procedural pain [Unknown]
  - Periorbital pain [Unknown]
  - Crying [Unknown]
  - Dyspnoea exertional [Unknown]
  - Neuralgia [Unknown]
  - Post procedural complication [Unknown]
  - Temporomandibular pain and dysfunction syndrome [Unknown]
  - Asthenia [Unknown]
  - Allodynia [Unknown]
  - Sexual dysfunction [Unknown]
  - Dizziness [Unknown]
  - Headache [Unknown]
  - Headache [Unknown]

NARRATIVE: CASE EVENT DATE: 20151201
